FAERS Safety Report 4655104-5 (Version None)
Quarter: 2005Q2

REPORT INFORMATION
  Report Type: 
  Country: None (occurrence: None)
  Receive Date: 20050506
  Receipt Date: 20050425
  Transmission Date: 20051028
  Serious: Yes (Other)
  Sender: FDA-Public Use
  Company Number: JP-JNJFOC-20050405770

PATIENT
  Age: 9 Year
  Sex: Male

DRUGS (5)
  1. ACETAMINOPHEN [Suspect]
     Indication: NAUSEA
  2. ACETAMINOPHEN [Suspect]
     Indication: CHILLS
  3. ACETAMINOPHEN [Suspect]
  4. ACETAMINOPHEN [Suspect]
  5. ANTIBACTERIALS [Concomitant]

REACTIONS (2)
  - STEVENS-JOHNSON SYNDROME [None]
  - TOXIC EPIDERMAL NECROLYSIS [None]
